FAERS Safety Report 9995007 (Version 1)
Quarter: 2014Q1

REPORT INFORMATION
  Report Type: Spontaneous
  Country: US (occurrence: None)
  Receive Date: 20140218
  Receipt Date: 20140218
  Transmission Date: 20141002
  Serious: Yes (Other)
  Sender: FDA-Public Use
  Company Number: 1000052863

PATIENT
  Age: 59 Year
  Sex: Female

DRUGS (3)
  1. VIIBRYD [Suspect]
     Indication: DEPRESSION
     Dosage: 10 MG, 1 IN  1 D
     Route: 048
     Dates: start: 20140108
  2. FLECAINIDE [Concomitant]
  3. TOPIRAMATE [Concomitant]

REACTIONS (1)
  - Urticaria [None]
